FAERS Safety Report 8402272-5 (Version None)
Quarter: 2012Q2

REPORT INFORMATION
  Report Type: 
  Country: None (occurrence: None)
  Receive Date: 20120529
  Receipt Date: 20120521
  Transmission Date: 20120825
  Serious: Yes (Hospitalization)
  Sender: FDA-Public Use
  Company Number: IMP_05907_2012

PATIENT
  Age: 45 Year
  Sex: Female

DRUGS (1)
  1. DOXYCYCLINE [Suspect]
     Indication: PURULENT DISCHARGE
     Dosage: (100 MG DAILY),

REACTIONS (5)
  - CHEST DISCOMFORT [None]
  - SCAR [None]
  - HERPES SIMPLEX [None]
  - ODYNOPHAGIA [None]
  - OESOPHAGITIS ULCERATIVE [None]
